FAERS Safety Report 13464420 (Version 1)
Quarter: 2017Q2

REPORT INFORMATION
  Report Type: Spontaneous
  Country: US (occurrence: US)
  Receive Date: 20170420
  Receipt Date: 20170420
  Transmission Date: 20170830
  Serious: Yes (Other)
  Sender: FDA-Public Use
  Company Number: US-ROCHE-722641

PATIENT
  Age: 55 Year
  Sex: Female
  Weight: 61.2 kg

DRUGS (4)
  1. HORMONE REPLACEMENT [Concomitant]
  2. CLINDAMYCIN PHOSPHATE. [Concomitant]
     Active Substance: CLINDAMYCIN PHOSPHATE
     Indication: PRODUCT USED FOR UNKNOWN INDICATION
     Route: 065
  3. ACCUTANE [Suspect]
     Active Substance: ISOTRETINOIN
     Indication: ACNE
     Route: 065
     Dates: start: 20010326, end: 20021016
  4. AVONEX [Concomitant]
     Active Substance: INTERFERON BETA-1A
     Route: 065

REACTIONS (6)
  - Gastrointestinal injury [Unknown]
  - Large intestine polyp [Unknown]
  - Arthralgia [Unknown]
  - Colitis ulcerative [Recovering/Resolving]
  - Crohn^s disease [Unknown]
  - Diverticulum [Unknown]

NARRATIVE: CASE EVENT DATE: 20021106
